FAERS Safety Report 14459729 (Version 1)
Quarter: 2018Q1

REPORT INFORMATION
  Report Type: Spontaneous
  Country: US (occurrence: US)
  Receive Date: 20180130
  Receipt Date: 20180130
  Transmission Date: 20180509
  Serious: Yes (Hospitalization, Other)
  Sender: FDA-Public Use
  Company Number: US-ASTRAZENECA-2018SE09968

PATIENT
  Age: 20408 Day
  Sex: Female
  Weight: 54 kg

DRUGS (8)
  1. METHIMAZOLE. [Concomitant]
     Active Substance: METHIMAZOLE
     Indication: THYROID DISORDER
  2. MORPHINE MS CONTIN [Concomitant]
     Indication: PAIN
     Dosage: 60 MG, 2 TO 3 TIMES A DAY
     Route: 048
  3. FENTANYL. [Concomitant]
     Active Substance: FENTANYL
     Indication: PAIN
     Dosage: 225.0MG UNKNOWN
     Route: 061
  4. FENTORA [Concomitant]
     Active Substance: FENTANYL CITRATE
     Indication: PAIN
     Dosage: 3200.0UG AS REQUIRED
     Route: 002
  5. ACTIQUE [Concomitant]
     Indication: PAIN
     Dosage: 3200.0UG AS REQUIRED
     Route: 048
  6. TAGRISSO [Suspect]
     Active Substance: OSIMERTINIB
     Indication: NON-SMALL CELL LUNG CANCER
     Route: 048
     Dates: start: 20171219
  7. PROTONIX [Concomitant]
     Active Substance: PANTOPRAZOLE SODIUM
     Indication: ADJUVANT THERAPY
  8. MORPHINE [Concomitant]
     Active Substance: MORPHINE
     Indication: PAIN
     Dosage: AS REQUIRED
     Route: 048

REACTIONS (7)
  - Interstitial lung disease [Unknown]
  - Oxygen saturation decreased [Recovered/Resolved]
  - Malignant neoplasm progression [Unknown]
  - Intestinal obstruction [Recovering/Resolving]
  - Headache [Recovered/Resolved]
  - Drug hypersensitivity [Unknown]
  - Off label use [Unknown]

NARRATIVE: CASE EVENT DATE: 20171224
